FAERS Safety Report 13151446 (Version 1)
Quarter: 2017Q1

REPORT INFORMATION
  Report Type: Spontaneous
  Country: US (occurrence: US)
  Receive Date: 20170125
  Receipt Date: 20170125
  Transmission Date: 20170428
  Serious: Yes (Other)
  Sender: FDA-Public Use
  Company Number: US-KADMON PHARMACEUTICALS, LLC-KAD201606-002278

PATIENT
  Age: 37 Year
  Sex: Female
  Weight: 58.96 kg

DRUGS (9)
  1. MELATONIN [Concomitant]
     Active Substance: MELATONIN
  2. FLONASE [Concomitant]
     Active Substance: FLUTICASONE PROPIONATE
  3. WELLBUTRIN [Concomitant]
     Active Substance: BUPROPION HYDROCHLORIDE
  4. VIEKIRA PAK [Suspect]
     Active Substance: DASABUVIR\OMBITASVIR\PARITAPREVIR\RITONAVIR
     Indication: HEPATITIS C
     Dosage: TABLET
     Route: 048
     Dates: start: 20160314, end: 20160523
  5. BENADRYL [Concomitant]
     Active Substance: DIPHENHYDRAMINE HYDROCHLORIDE
  6. TYLENOL [Concomitant]
     Active Substance: ACETAMINOPHEN
  7. AMBIEN [Concomitant]
     Active Substance: ZOLPIDEM TARTRATE
  8. RIBAVIRIN. [Suspect]
     Active Substance: RIBAVIRIN
     Indication: HEPATITIS C
     Dosage: TABLET
     Route: 048
     Dates: start: 20160314, end: 20160523
  9. LORAZEPAM. [Concomitant]
     Active Substance: LORAZEPAM

REACTIONS (11)
  - Lethargy [Recovered/Resolved]
  - Anger [Recovered/Resolved]
  - Insomnia [Recovered/Resolved]
  - Menorrhagia [Recovered/Resolved]
  - Hostility [Recovered/Resolved]
  - Contusion [Recovered/Resolved]
  - Pain in extremity [Recovered/Resolved]
  - Belligerence [Recovered/Resolved]
  - Anxiety [Recovered/Resolved]
  - Arthralgia [Recovered/Resolved]
  - Suicidal ideation [Recovered/Resolved]

NARRATIVE: CASE EVENT DATE: 20160314
